FAERS Safety Report 8402154-9 (Version None)
Quarter: 2012Q2

REPORT INFORMATION
  Report Type: 
  Country: None (occurrence: None)
  Receive Date: 20120529
  Receipt Date: 20120515
  Transmission Date: 20120825
  Serious: Yes (Hospitalization)
  Sender: FDA-Public Use
  Company Number: 2012SP026413

PATIENT
  Sex: Female

DRUGS (1)
  1. MERCILON CONTI (DESOGESTREL/ETHINYLESTRADIOL / 1 00570801/) [Suspect]
     Indication: PRODUCT USED FOR UNKNOWN INDICATION
     Dosage: ;PO
     Route: 048
     Dates: start: 20070101

REACTIONS (1)
  - MENSTRUATION IRREGULAR [None]
